FAERS Safety Report 4415040-6 (Version None)
Quarter: 2004Q3

REPORT INFORMATION
  Report Type: 
  Country: None (occurrence: None)
  Receive Date: 20040803
  Receipt Date: 20040803
  Transmission Date: 20050211
  Serious: Yes (Hospitalization)
  Sender: FDA-Public Use
  Company Number: None

PATIENT
  Age: 45 Year
  Sex: Female
  Weight: 58.514 kg

DRUGS (11)
  1. DARBEPOETIN ALFA [Suspect]
     Indication: ANAEMIA OF CHRONIC DISEASE
     Dosage: SC INJ EVERY 2-4 WKS @ 1.5 MCG/KG
     Route: 058
     Dates: start: 20040402
  2. DARBEPOETIN ALFA [Suspect]
     Indication: ANAEMIA OF CHRONIC DISEASE
     Dosage: SC INJ EVERY 2-4 WKS @ 1.5 MCG/KG
     Route: 058
     Dates: start: 20040708
  3. ETANERCEPT [Concomitant]
  4. DICLOFENAC [Concomitant]
  5. CYCLOSPORINE [Concomitant]
  6. SUDAFED S.A. [Concomitant]
  7. FLEXERIL [Concomitant]
  8. BENADRYL [Concomitant]
  9. IRON [Concomitant]
  10. FOLIC ACID [Concomitant]
  11. MULTI-VITAMINS [Concomitant]

REACTIONS (1)
  - DEPRESSION [None]
